FAERS Safety Report 21201605 (Version 2)
Quarter: 2022Q3

REPORT INFORMATION
  Report Type: Spontaneous
  Country: US (occurrence: US)
  Receive Date: 20220811
  Receipt Date: 20220829
  Transmission Date: 20221026
  Serious: No
  Sender: FDA-Public Use
  Company Number: US-GLAXOSMITHKLINE-US2022116832

PATIENT
  Age: 72 Year
  Sex: Female

DRUGS (1)
  1. ZEJULA [Suspect]
     Active Substance: NIRAPARIB
     Indication: Malignant peritoneal neoplasm
     Dosage: 200 MG, QD
     Route: 048
     Dates: start: 20220801

REACTIONS (8)
  - Illness [Unknown]
  - Nausea [Unknown]
  - Feeding disorder [Unknown]
  - Diarrhoea [Unknown]
  - Weight decreased [Unknown]
  - Asthenia [Unknown]
  - Decreased appetite [Unknown]
  - Dehydration [Unknown]

NARRATIVE: CASE EVENT DATE: 20220801
